FAERS Safety Report 9271790 (Version 4)
Quarter: 2013Q4

REPORT INFORMATION
  Report Type: Spontaneous
  Country: IT (occurrence: IT)
  Receive Date: 20130506
  Receipt Date: 20131108
  Transmission Date: 20140711
  Serious: Yes (Hospitalization, Other)
  Sender: FDA-Public Use
  Company Number: IT-PFIZER INC-2013137786

PATIENT
  Age: 74 Year
  Sex: Male

DRUGS (11)
  1. MYCOBUTIN [Suspect]
     Indication: TUBERCULOSIS
     Dosage: 150 MG, 1X/DAY
     Route: 048
     Dates: start: 20130201, end: 20130324
  2. LEVOXACIN [Suspect]
     Indication: CYSTITIS
     Dosage: 500 MG, ALTERNATE DAY
     Route: 048
     Dates: start: 20130322, end: 20130324
  3. NICOZID [Suspect]
     Indication: TUBERCULOSIS
     Dosage: 200 MG, 1X/DAY
     Route: 048
     Dates: start: 20130201, end: 20130324
  4. CORDARONE [Concomitant]
     Indication: MYOCARDIAL ISCHAEMIA
     Dosage: 200 MG, UNK
     Route: 048
  5. OMNIC [Concomitant]
     Dosage: 0.4 MG, UNK
     Route: 048
  6. AVODART [Concomitant]
     Dosage: 0.5 MG, UNK
     Route: 048
  7. LASIX [Concomitant]
     Indication: CARDIAC FAILURE
     Dosage: 100 MG, UNK
     Route: 048
  8. ASCRIPTIN [Concomitant]
     Indication: MYOCARDIAL ISCHAEMIA
     Dosage: 300 MG, UNK
     Route: 048
  9. PARIET [Concomitant]
     Indication: PROPHYLAXIS
     Dosage: 20 MG, UNK
     Route: 048
  10. CALCITRIOL [Concomitant]
     Dosage: UNK
  11. EUTIROX [Concomitant]
     Indication: HYPOTHYROIDISM
     Dosage: 25 UG, UNK
     Route: 048

REACTIONS (7)
  - Hyperbilirubinaemia [Recovered/Resolved]
  - Renal failure acute [Recovered/Resolved]
  - Transaminases increased [Recovered/Resolved]
  - Renal failure acute [Recovered/Resolved]
  - Atrial fibrillation [Recovered/Resolved]
  - Hypotension [Recovered/Resolved]
  - Tachycardia [Recovered/Resolved]
